FAERS Safety Report 4377738-8 (Version None)
Quarter: 2004Q2

REPORT INFORMATION
  Report Type: 
  Country: None (occurrence: None)
  Receive Date: 20040608
  Receipt Date: 20040524
  Transmission Date: 20050107
  Serious: Yes (Hospitalization)
  Sender: FDA-Public Use
  Company Number: STA-AE-04-MTX-236

PATIENT
  Age: 27 Year
  Sex: Female

DRUGS (11)
  1. RHEUMATREX [Suspect]
     Indication: RHEUMATOID ARTHRITIS
     Dosage: 4MG 1X PER WK, ORAL
     Route: 048
     Dates: end: 20020918
  2. METHOTREXATE [Suspect]
     Indication: ARTHRITIS
     Dosage: 5MG 1X PER 1 WK, ORAL
     Route: 048
     Dates: start: 19980101
  3. CYCLOPHOSPHAMIDE [Concomitant]
  4. ALTAT (ROXATIDINE ACETATE HYDRCHLORIDE) [Concomitant]
  5. BEZATOL - SLOW RELEASE (BEZAFIBRATE) [Concomitant]
  6. PREDNISOLONE [Concomitant]
  7. ALFAROL (ALFACALCIDOL) [Concomitant]
  8. TORSEMIDE [Concomitant]
  9. WARFARIN SODIUM [Concomitant]
  10. LIPITOR [Concomitant]
  11. ACECOL (TEMOCAPRIL HYDROCHLORIDE) [Concomitant]

REACTIONS (2)
  - DENTAL CARIES [None]
  - MYELODYSPLASTIC SYNDROME [None]
